FAERS Safety Report 18387980 (Version 1)
Quarter: 2020Q4

REPORT INFORMATION
  Report Type: Spontaneous
  Country: FR (occurrence: FR)
  Receive Date: 20201015
  Receipt Date: 20201015
  Transmission Date: 20210114
  Serious: Yes (Other)
  Sender: FDA-Public Use
  Company Number: FR-ASTRAZENECA-2020SF30723

PATIENT
  Age: 71 Year
  Sex: Female

DRUGS (3)
  1. OMEPRAZOLE. [Suspect]
     Active Substance: OMEPRAZOLE
     Indication: SPINAL COLUMN INJURY
     Route: 048
     Dates: start: 20200630, end: 202007
  2. PARACETAMOL,CODEINE PHOSPHATE [Suspect]
     Active Substance: ACETAMINOPHEN\CODEINE PHOSPHATE
     Indication: SPINAL COLUMN INJURY
     Route: 065
     Dates: start: 20200630
  3. ESOMPERAZOLE [Suspect]
     Active Substance: ESOMEPRAZOLE SODIUM
     Indication: SPINAL COLUMN INJURY
     Route: 048
     Dates: start: 20200630

REACTIONS (8)
  - Rash [Not Recovered/Not Resolved]
  - Proteus infection [Not Recovered/Not Resolved]
  - Candida infection [Not Recovered/Not Resolved]
  - Erythema [Not Recovered/Not Resolved]
  - Genital infection female [Not Recovered/Not Resolved]
  - Fatigue [Not Recovered/Not Resolved]
  - Off label use [Recovered/Resolved]
  - Pruritus [Not Recovered/Not Resolved]
